FAERS Safety Report 8571574-4 (Version None)
Quarter: 2012Q3

REPORT INFORMATION
  Report Type: 
  Country: None (occurrence: None)
  Receive Date: 20120806
  Receipt Date: 20120801
  Transmission Date: 20120928
  Serious: Yes (Other)
  Sender: FDA-Public Use
  Company Number: PHHY2012FR066725

PATIENT
  Age: 69 Year
  Sex: Female

DRUGS (6)
  1. LASIX [Concomitant]
     Indication: CARDIAC DISORDER
     Dosage: UNK UKN, UNK
     Route: 065
  2. ASPIRIN [Concomitant]
     Indication: CARDIAC DISORDER
     Dosage: UNK UKN, UNK
     Route: 065
  3. PROCORALAN [Concomitant]
     Indication: CARDIAC DISORDER
     Dosage: UNK UKN, UNK
     Route: 065
  4. PLAVIX [Concomitant]
     Indication: CARDIAC DISORDER
     Dosage: UNK UKN, UNK
     Route: 065
  5. ATORVASTATIN [Concomitant]
     Indication: CARDIAC DISORDER
     Dosage: UNK UKN, UNK
     Route: 065
  6. FEMARA [Suspect]
     Indication: BREAST CANCER
     Route: 065
     Dates: start: 20120401

REACTIONS (3)
  - DYSPNOEA [None]
  - DISCOMFORT [None]
  - HYPOKINESIA [None]
